FAERS Safety Report 12048383 (Version 3)
Quarter: 2016Q2

REPORT INFORMATION
  Report Type: Report from Study
  Country: DE (occurrence: DE)
  Receive Date: 20160208
  Receipt Date: 20160609
  Transmission Date: 20160815
  Serious: Yes (Other)
  Sender: FDA-Public Use
  Company Number: DE-GILEAD-2016-0195981

PATIENT
  Age: 50 Year
  Sex: Female
  Weight: 98 kg

DRUGS (4)
  1. LINOLA [Concomitant]
     Dosage: UNK
     Route: 065
  2. SOFOSBUVIR [Suspect]
     Active Substance: SOFOSBUVIR
     Indication: CHRONIC HEPATITIS C
     Dosage: 400 MG, QD
     Route: 048
     Dates: start: 20150915
  3. ECURAL [Concomitant]
     Active Substance: MOMETASONE
     Dosage: UNK
     Route: 065
  4. REBETOL [Suspect]
     Active Substance: RIBAVIRIN
     Indication: CHRONIC HEPATITIS C
     Dosage: 1000 MG, QD
     Route: 048
     Dates: start: 20150915

REACTIONS (7)
  - Vasculitis [Recovered/Resolved]
  - Bronchitis [Recovered/Resolved]
  - Depressed mood [Recovered/Resolved]
  - Conjunctivitis [Recovered/Resolved]
  - Fatigue [Recovered/Resolved]
  - Sinusitis [Recovered/Resolved]
  - Pruritus [Recovered/Resolved]
